FAERS Safety Report 20421961 (Version 1)
Quarter: 2022Q1

REPORT INFORMATION
  Report Type: Spontaneous
  Country: US (occurrence: US)
  Receive Date: 20220203
  Receipt Date: 20220203
  Transmission Date: 20220424
  Serious: No
  Sender: FDA-Public Use
  Company Number: US-KYOWAKIRIN-2022BKK000702

PATIENT

DRUGS (2)
  1. CRYSVITA [Suspect]
     Active Substance: BUROSUMAB-TWZA
     Indication: Hereditary hypophosphataemic rickets
     Dosage: 20 MG (COMBINED WITH 60 MG OF CRYSVITA STRENGTH 30 MG/ML TO ACHIEVE A TOTAL DOSE OF 80 MG), EVERY 4
     Route: 058
     Dates: start: 20211231
  2. CRYSVITA [Suspect]
     Active Substance: BUROSUMAB-TWZA
     Indication: Hereditary hypophosphataemic rickets
     Dosage: 60 MG (COMBINED WITH 20 MG OF CRYSVITA STRENGTH 20 MG/ML TO ACHIEVE A TOTAL DOSE OF 80 MG), EVERY 4
     Route: 058
     Dates: start: 20211231

REACTIONS (2)
  - Knee deformity [Unknown]
  - Condition aggravated [Unknown]

NARRATIVE: CASE EVENT DATE: 20210101
